FAERS Safety Report 5890067-6 (Version None)
Quarter: 2008Q3

REPORT INFORMATION
  Report Type: 
  Country: None (occurrence: None)
  Receive Date: 20080919
  Receipt Date: 20080902
  Transmission Date: 20090109
  Serious: No
  Sender: FDA-Public Use
  Company Number: US-B.I. PHARMACEUTICALS,INC./RIDGEFIELD-2008-BP-13993BP

PATIENT
  Age: 79 Year
  Sex: Female

DRUGS (1)
  1. COMBIVENT [Suspect]
     Indication: DYSPNOEA
     Dosage: 6PUF
     Route: 055
     Dates: start: 20080101

REACTIONS (2)
  - OEDEMA MOUTH [None]
  - RASH [None]
